FAERS Safety Report 7084557-0 (Version None)
Quarter: 2010Q4

REPORT INFORMATION
  Report Type: 
  Country: None (occurrence: None)
  Receive Date: 20101104
  Receipt Date: 20101027
  Transmission Date: 20110411
  Serious: No
  Sender: FDA-Public Use
  Company Number: US-B.I. PHARMACEUTICALS,INC./RIDGEFIELD-2010-BP-12034BP

PATIENT
  Age: 87 Year
  Sex: Male

DRUGS (4)
  1. FLOMAX [Suspect]
     Indication: PROSTATOMEGALY
     Dosage: 0.4 MG
     Route: 048
     Dates: start: 20080901, end: 20101001
  2. CORNSTARCH WITH SOY [Concomitant]
     Indication: HYPOGLYCAEMIA
  3. SYNTHROID [Concomitant]
     Indication: THYROID DISORDER
  4. AVODART [Concomitant]
     Indication: BENIGN PROSTATIC HYPERPLASIA

REACTIONS (1)
  - MUCOUS STOOLS [None]
